FAERS Safety Report 20751404 (Version 1)
Quarter: 2022Q2

REPORT INFORMATION
  Report Type: Spontaneous
  Country: US (occurrence: None)
  Receive Date: 20220426
  Receipt Date: 20220426
  Transmission Date: 20220721
  Serious: No
  Sender: FDA-Public Use
  Company Number: None

PATIENT

DRUGS (2)
  1. TAMSULOSIN HYDROCHLORIDE [Suspect]
     Active Substance: TAMSULOSIN HYDROCHLORIDE
  2. FENOFIBRATE [Suspect]
     Active Substance: FENOFIBRATE

REACTIONS (3)
  - Wrong patient received product [None]
  - Product dispensing error [None]
  - Wrong product administered [None]
